FAERS Safety Report 11517436 (Version 1)
Quarter: 2015Q3

REPORT INFORMATION
  Report Type: Spontaneous
  Country: BR (occurrence: BR)
  Receive Date: 20150917
  Receipt Date: 20150917
  Transmission Date: 20151125
  Serious: Yes (Other)
  Sender: FDA-Public Use
  Company Number: BR-PFIZER INC-2015304848

PATIENT
  Age: 83 Year
  Sex: Male
  Weight: 74 kg

DRUGS (7)
  1. XALATAN [Suspect]
     Active Substance: LATANOPROST
     Dosage: 1 DROP IN RIGHT EYE ONCE A DAY
     Route: 047
  2. MAREVAN [Concomitant]
     Active Substance: WARFARIN SODIUM
     Indication: PULMONARY EMBOLISM
     Dosage: 1 DF, 1 TABLET A DAY
  3. OLCADIL [Concomitant]
     Active Substance: CLOXAZOLAM
     Indication: DEPRESSION
     Dosage: 1 DF, 1 TABLET A DAY
     Dates: start: 2014
  4. SIMVASTATIN. [Concomitant]
     Active Substance: SIMVASTATIN
     Indication: HEART INJURY
     Dosage: 1 DF, 1 TABLET A DAY
     Dates: start: 2013
  5. PRED FORTE [Concomitant]
     Active Substance: PREDNISOLONE ACETATE
     Indication: ANTIINFLAMMATORY THERAPY
     Dosage: 2 GTT, 2 DROPS A DAY IN RIGHT EYE
  6. COMBIGAN [Concomitant]
     Active Substance: BRIMONIDINE TARTRATE\TIMOLOL MALEATE
     Dosage: 2 DROPS A DAY IN THE RIGHT EYE
     Dates: start: 2014
  7. ENALAPRIL [Concomitant]
     Active Substance: ENALAPRIL
     Indication: HYPERTENSION
     Dosage: 1 DF, 1 TABLET A DAY

REACTIONS (2)
  - Prostate cancer [Unknown]
  - Transplant rejection [Unknown]

NARRATIVE: CASE EVENT DATE: 2014
